FAERS Safety Report 24594038 (Version 2)
Quarter: 2024Q4

REPORT INFORMATION
  Report Type: Report from Study
  Country: US (occurrence: US)
  Receive Date: 20241108
  Receipt Date: 20241210
  Transmission Date: 20250114
  Serious: Yes (Hospitalization)
  Sender: BAXTER
  Company Number: US-BAXTER-2024BAX027157

PATIENT
  Age: 65 Year
  Sex: Female
  Weight: 61.2 kg

DRUGS (8)
  1. DOXIL [Suspect]
     Active Substance: DOXORUBICIN HYDROCHLORIDE
     Indication: Breast cancer female
     Dosage: 65 MG CYCLIC (MONTHLY), CYCLE 1 DAY 1
     Route: 042
     Dates: start: 20241001, end: 20241001
  2. DOXIL [Suspect]
     Active Substance: DOXORUBICIN HYDROCHLORIDE
     Dosage: 50MG (150 ML/HR OVER 120 MIN), (DOSE REDUCED BY 25%), C2D1
     Route: 042
     Dates: start: 20241105, end: 20241105
  3. BINIMETINIB [Suspect]
     Active Substance: BINIMETINIB
     Indication: Triple negative breast cancer
     Dosage: 45 MG, 2X/DAY (CYCLE 1 DAY MINUS 15)
     Route: 048
     Dates: start: 20240917, end: 20241023
  4. BINIMETINIB [Suspect]
     Active Substance: BINIMETINIB
     Indication: Metastases to liver
     Dosage: 30 MG, BID, C2
     Route: 048
     Dates: start: 20241105
  5. AVELUMAB [Suspect]
     Active Substance: AVELUMAB
     Indication: Breast cancer female
     Dosage: 589 MG CYCLIC (EVERY 2 WEEKS), CYCLE 1 DAY 1
     Route: 042
     Dates: start: 20241001, end: 20241015
  6. AVELUMAB [Suspect]
     Active Substance: AVELUMAB
     Dosage: 589MG (250 ML/HR OVER 60 MIN), C2D1
     Route: 042
     Dates: start: 20241105, end: 20241105
  7. SODIUM CHLORIDE [Concomitant]
     Active Substance: SODIUM CHLORIDE
     Indication: Dehydration
     Dosage: 1000 ML, ONCE
     Route: 042
     Dates: start: 20241023, end: 20241028
  8. SODIUM CHLORIDE [Concomitant]
     Active Substance: SODIUM CHLORIDE
     Dosage: 75 ML/HR (IV INFUSION), ONGOING
     Route: 042
     Dates: start: 20241024

REACTIONS (2)
  - Pyrexia [Recovered/Resolved]
  - Stomatitis [Recovered/Resolved]

NARRATIVE: CASE EVENT DATE: 20241023
